FAERS Safety Report 7417714-1 (Version None)
Quarter: 2011Q2

REPORT INFORMATION
  Report Type: 
  Country: None (occurrence: None)
  Receive Date: 20110415
  Receipt Date: 20110411
  Transmission Date: 20111010
  Serious: Yes (Death)
  Sender: FDA-Public Use
  Company Number: PHHY2011US30873

PATIENT
  Sex: Female

DRUGS (1)
  1. TOBI [Suspect]
     Indication: LUNG DISORDER
     Dosage: 300 MG, BID, 5 ML AMPOULE (56/PK) INJECT 1 AMPULE VIA NEBULIZER TWICE A DAY EVERY OTHER MONTH
     Dates: start: 20070926

REACTIONS (2)
  - DEATH [None]
  - GENERAL PHYSICAL CONDITION ABNORMAL [None]
